FAERS Safety Report 15377475 (Version 3)
Quarter: 2018Q3

REPORT INFORMATION
  Report Type: Report from Study
  Country: CN (occurrence: CN)
  Receive Date: 20180913
  Receipt Date: 20180926
  Transmission Date: 20181010
  Serious: Yes (Hospitalization)
  Sender: FDA-Public Use
  Company Number: CN-SA-2018SA232491

PATIENT
  Age: 34 Year
  Sex: Male
  Weight: 59 kg

DRUGS (111)
  1. BLINDED NO STUDY DRUG GIVEN [Suspect]
     Active Substance: INVESTIGATIONAL PRODUCT
     Dosage: 6 DF, QD
     Route: 048
     Dates: start: 20180706, end: 20180707
  2. BLINDED SEVELAMER CARBONATE [Suspect]
     Active Substance: SEVELAMER CARBONATE
     Dosage: 3 DF, QD
     Route: 048
     Dates: start: 20180708, end: 20180712
  3. BLINDED SEVELAMER CARBONATE [Suspect]
     Active Substance: SEVELAMER CARBONATE
     Dosage: 4 DF, QD
     Route: 048
     Dates: start: 20180802, end: 20180802
  4. BLINDED SEVELAMER CARBONATE [Suspect]
     Active Substance: SEVELAMER CARBONATE
     Dosage: 4 DF, QD
     Route: 048
     Dates: start: 20180803, end: 20180803
  5. BLINDED SEVELAMER CARBONATE [Suspect]
     Active Substance: SEVELAMER CARBONATE
     Dosage: 4 DF, QD
     Route: 048
     Dates: start: 20180803, end: 20180803
  6. BLINDED SEVELAMER CARBONATE [Suspect]
     Active Substance: SEVELAMER CARBONATE
     Dosage: 9 DF, QD
     Route: 048
     Dates: start: 20180810, end: 20180815
  7. BLINDED SEVELAMER CARBONATE [Suspect]
     Active Substance: SEVELAMER CARBONATE
     Dosage: 4 DF, UNK
     Route: 048
     Dates: start: 20180821, end: 20180821
  8. BLINDED NO STUDY DRUG GIVEN [Suspect]
     Active Substance: INVESTIGATIONAL PRODUCT
     Dosage: 12 DF, UNK
     Route: 048
     Dates: start: 20180822, end: 20180823
  9. BLINDED PLACEBO [Suspect]
     Active Substance: INVESTIGATIONAL PRODUCT
     Dosage: 12 DF, UNK
     Route: 048
     Dates: start: 20180822, end: 20180823
  10. BLINDED SEVELAMER CARBONATE [Suspect]
     Active Substance: SEVELAMER CARBONATE
     Dosage: 12 DF, UNK
     Route: 048
     Dates: start: 20180822, end: 20180823
  11. BLINDED NO STUDY DRUG GIVEN [Suspect]
     Active Substance: INVESTIGATIONAL PRODUCT
     Dosage: 8 DF, UNK
     Route: 041
     Dates: start: 20180824, end: 20180824
  12. BLINDED SEVELAMER CARBONATE [Suspect]
     Active Substance: SEVELAMER CARBONATE
     Dosage: 8 DF, UNK
     Route: 048
     Dates: start: 20180826, end: 20180828
  13. BAI LING JIAO NANG [Concomitant]
     Indication: CHRONIC KIDNEY DISEASE
     Dosage: 9 DF, TID
     Route: 048
     Dates: start: 20180209
  14. BLINDED NO STUDY DRUG GIVEN [Suspect]
     Active Substance: INVESTIGATIONAL PRODUCT
     Dosage: 3 DF, QD
     Route: 048
     Dates: start: 20180708, end: 20180712
  15. BLINDED SEVELAMER CARBONATE [Suspect]
     Active Substance: SEVELAMER CARBONATE
     Dosage: 3 DF, QD
     Route: 048
     Dates: start: 20180708, end: 20180712
  16. BLINDED NO STUDY DRUG GIVEN [Suspect]
     Active Substance: INVESTIGATIONAL PRODUCT
     Dosage: 3 DF, QD
     Route: 048
     Dates: start: 20180720, end: 20180721
  17. BLINDED SEVELAMER CARBONATE [Suspect]
     Active Substance: SEVELAMER CARBONATE
     Dosage: 4 DF, QD
     Route: 048
     Dates: start: 20180731, end: 20180731
  18. BLINDED SEVELAMER CARBONATE [Suspect]
     Active Substance: SEVELAMER CARBONATE
     Dosage: 4 DF, QD
     Route: 048
     Dates: start: 20180803, end: 20180803
  19. BLINDED PLACEBO [Suspect]
     Active Substance: INVESTIGATIONAL PRODUCT
     Dosage: 8 DF, UNK
     Route: 041
     Dates: start: 20180824, end: 20180824
  20. BLINDED SEVELAMER CARBONATE [Suspect]
     Active Substance: SEVELAMER CARBONATE
     Dosage: 8 DF, UNK
     Route: 041
     Dates: start: 20180824, end: 20180824
  21. BLINDED SEVELAMER CARBONATE [Suspect]
     Active Substance: SEVELAMER CARBONATE
     Dosage: 0 DF, UNK
     Route: 048
     Dates: start: 20180829, end: 20180902
  22. AMLODIPINE BESYLATE. [Concomitant]
     Active Substance: AMLODIPINE BESYLATE
     Dosage: 2 UNK
     Route: 048
     Dates: start: 20180629
  23. BLINDED SEVELAMER CARBONATE [Suspect]
     Active Substance: SEVELAMER CARBONATE
     Indication: HYPERPHOSPHATAEMIA
     Dosage: 4 DF, QD
     Route: 048
     Dates: start: 20180705, end: 20180705
  24. BLINDED SEVELAMER CARBONATE [Suspect]
     Active Substance: SEVELAMER CARBONATE
     Indication: HYPERPHOSPHATAEMIA
     Dosage: 4 DF, QD
     Route: 048
     Dates: start: 20180705, end: 20180705
  25. BLINDED PLACEBO [Suspect]
     Active Substance: INVESTIGATIONAL PRODUCT
     Dosage: 3 DF, QD
     Route: 048
     Dates: start: 20180708, end: 20180712
  26. BLINDED PLACEBO [Suspect]
     Active Substance: INVESTIGATIONAL PRODUCT
     Dosage: 3 DF, QD
     Route: 048
     Dates: start: 20180720, end: 20180721
  27. BLINDED NO STUDY DRUG GIVEN [Suspect]
     Active Substance: INVESTIGATIONAL PRODUCT
     Dosage: 6 DF, QD
     Route: 048
     Dates: start: 20180722, end: 20180730
  28. BLINDED NO STUDY DRUG GIVEN [Suspect]
     Active Substance: INVESTIGATIONAL PRODUCT
     Dosage: 4 DF, QD
     Route: 048
     Dates: start: 20180731, end: 20180731
  29. BLINDED NO STUDY DRUG GIVEN [Suspect]
     Active Substance: INVESTIGATIONAL PRODUCT
     Dosage: 6 DF, QD
     Route: 048
     Dates: start: 20180801, end: 20180801
  30. BLINDED NO STUDY DRUG GIVEN [Suspect]
     Active Substance: INVESTIGATIONAL PRODUCT
     Dosage: 6 DF, QD
     Route: 048
     Dates: start: 20180804, end: 20180806
  31. BLINDED NO STUDY DRUG GIVEN [Suspect]
     Active Substance: INVESTIGATIONAL PRODUCT
     Dosage: 9 DF, QD
     Route: 048
     Dates: start: 20180807, end: 20180808
  32. BLINDED SEVELAMER CARBONATE [Suspect]
     Active Substance: SEVELAMER CARBONATE
     Dosage: 9 DF, QD
     Route: 048
     Dates: start: 20180810, end: 20180815
  33. BLINDED NO STUDY DRUG GIVEN [Suspect]
     Active Substance: INVESTIGATIONAL PRODUCT
     Dosage: 4 DF, UNK
     Route: 048
     Dates: start: 20180821, end: 20180821
  34. BLINDED SEVELAMER CARBONATE [Suspect]
     Active Substance: SEVELAMER CARBONATE
     Dosage: 4 DF, UNK
     Route: 048
     Dates: start: 20180821, end: 20180821
  35. BLINDED SEVELAMER CARBONATE [Suspect]
     Active Substance: SEVELAMER CARBONATE
     Dosage: 4 DF, UNK
     Route: 048
     Dates: start: 20180821, end: 20180821
  36. BLINDED SEVELAMER CARBONATE [Suspect]
     Active Substance: SEVELAMER CARBONATE
     Dosage: 8 DF, UNK
     Route: 041
     Dates: start: 20180824, end: 20180824
  37. BLINDED NO STUDY DRUG GIVEN [Suspect]
     Active Substance: INVESTIGATIONAL PRODUCT
     Dosage: 12 DF, UNK
     Route: 048
     Dates: start: 20180825, end: 20180825
  38. BLINDED NO STUDY DRUG GIVEN [Suspect]
     Active Substance: INVESTIGATIONAL PRODUCT
     Indication: HYPERPHOSPHATAEMIA
     Dosage: 4 DF, QD
     Route: 048
     Dates: start: 20180705, end: 20180705
  39. BLINDED SEVELAMER CARBONATE [Suspect]
     Active Substance: SEVELAMER CARBONATE
     Dosage: 6 DF, QD
     Route: 048
     Dates: start: 20180706, end: 20180707
  40. BLINDED SEVELAMER CARBONATE [Suspect]
     Active Substance: SEVELAMER CARBONATE
     Dosage: 3 DF, QD
     Route: 048
     Dates: start: 20180708, end: 20180712
  41. BLINDED SEVELAMER CARBONATE [Suspect]
     Active Substance: SEVELAMER CARBONATE
     Dosage: 2 DF, QD
     Route: 048
     Dates: start: 20180718, end: 20180718
  42. BLINDED NO STUDY DRUG GIVEN [Suspect]
     Active Substance: INVESTIGATIONAL PRODUCT
     Dosage: 1 DF, QD
     Route: 048
     Dates: start: 20180719, end: 20180719
  43. BLINDED SEVELAMER CARBONATE [Suspect]
     Active Substance: SEVELAMER CARBONATE
     Dosage: 1 DF, QD
     Route: 048
     Dates: start: 20180719, end: 20180719
  44. BLINDED SEVELAMER CARBONATE [Suspect]
     Active Substance: SEVELAMER CARBONATE
     Dosage: 3 DF, QD
     Route: 048
     Dates: start: 20180720, end: 20180721
  45. BLINDED SEVELAMER CARBONATE [Suspect]
     Active Substance: SEVELAMER CARBONATE
     Dosage: 6 DF, QD
     Route: 048
     Dates: start: 20180722, end: 20180730
  46. BLINDED SEVELAMER CARBONATE [Suspect]
     Active Substance: SEVELAMER CARBONATE
     Dosage: 4 DF, QD
     Route: 048
     Dates: start: 20180802, end: 20180802
  47. BLINDED NO STUDY DRUG GIVEN [Suspect]
     Active Substance: INVESTIGATIONAL PRODUCT
     Dosage: 4 DF, QD
     Route: 048
     Dates: start: 20180803, end: 20180803
  48. BLINDED PLACEBO [Suspect]
     Active Substance: INVESTIGATIONAL PRODUCT
     Dosage: 4 DF, QD
     Route: 048
     Dates: start: 20180803, end: 20180803
  49. BLINDED PLACEBO [Suspect]
     Active Substance: INVESTIGATIONAL PRODUCT
     Dosage: 6 DF, QD
     Route: 048
     Dates: start: 20180804, end: 20180806
  50. BLINDED SEVELAMER CARBONATE [Suspect]
     Active Substance: SEVELAMER CARBONATE
     Dosage: 6 DF, QD
     Route: 048
     Dates: start: 20180804, end: 20180806
  51. BLINDED PLACEBO [Suspect]
     Active Substance: INVESTIGATIONAL PRODUCT
     Dosage: 6 DF, QD
     Route: 048
     Dates: start: 20180809, end: 20180809
  52. BLINDED SEVELAMER CARBONATE [Suspect]
     Active Substance: SEVELAMER CARBONATE
     Dosage: 6 DF, QD
     Route: 048
     Dates: start: 20180809, end: 20180809
  53. BLINDED NO STUDY DRUG GIVEN [Suspect]
     Active Substance: INVESTIGATIONAL PRODUCT
     Dosage: 9 DF, QD
     Route: 048
     Dates: start: 20180810, end: 20180815
  54. BLINDED SEVELAMER CARBONATE [Suspect]
     Active Substance: SEVELAMER CARBONATE
     Dosage: 9 DF, QD
     Route: 048
     Dates: start: 20180810, end: 20180815
  55. BLINDED PLACEBO [Suspect]
     Active Substance: INVESTIGATIONAL PRODUCT
     Dosage: 8 DF, UNK
     Route: 048
     Dates: start: 20180826, end: 20180828
  56. BLINDED SEVELAMER CARBONATE [Suspect]
     Active Substance: SEVELAMER CARBONATE
     Dosage: 8 DF, UNK
     Route: 048
     Dates: start: 20180826, end: 20180828
  57. BLINDED SEVELAMER CARBONATE [Suspect]
     Active Substance: SEVELAMER CARBONATE
     Dosage: 0 DF, UNK
     Route: 048
     Dates: start: 20180829, end: 20180902
  58. BLINDED PLACEBO [Suspect]
     Active Substance: INVESTIGATIONAL PRODUCT
     Dosage: 6 DF, QD
     Route: 048
     Dates: start: 20180706, end: 20180707
  59. BLINDED SEVELAMER CARBONATE [Suspect]
     Active Substance: SEVELAMER CARBONATE
     Dosage: 2 DF, QD
     Route: 048
     Dates: start: 20180718, end: 20180718
  60. BLINDED SEVELAMER CARBONATE [Suspect]
     Active Substance: SEVELAMER CARBONATE
     Dosage: 1 DF, QD
     Route: 048
     Dates: start: 20180719, end: 20180719
  61. BLINDED PLACEBO [Suspect]
     Active Substance: INVESTIGATIONAL PRODUCT
     Dosage: 6 DF, QD
     Route: 048
     Dates: start: 20180722, end: 20180730
  62. BLINDED SEVELAMER CARBONATE [Suspect]
     Active Substance: SEVELAMER CARBONATE
     Dosage: 6 DF, QD
     Route: 048
     Dates: start: 20180722, end: 20180730
  63. BLINDED SEVELAMER CARBONATE [Suspect]
     Active Substance: SEVELAMER CARBONATE
     Dosage: 4 DF, QD
     Route: 048
     Dates: start: 20180731, end: 20180731
  64. BLINDED PLACEBO [Suspect]
     Active Substance: INVESTIGATIONAL PRODUCT
     Dosage: 6 DF, QD
     Route: 048
     Dates: start: 20180801, end: 20180801
  65. BLINDED PLACEBO [Suspect]
     Active Substance: INVESTIGATIONAL PRODUCT
     Dosage: 4 DF, QD
     Route: 048
     Dates: start: 20180802, end: 20180802
  66. BLINDED SEVELAMER CARBONATE [Suspect]
     Active Substance: SEVELAMER CARBONATE
     Dosage: 4 DF, QD
     Route: 048
     Dates: start: 20180802, end: 20180802
  67. BLINDED PLACEBO [Suspect]
     Active Substance: INVESTIGATIONAL PRODUCT
     Dosage: 4 DF, UNK
     Route: 048
     Dates: start: 20180821, end: 20180821
  68. BLINDED SEVELAMER CARBONATE [Suspect]
     Active Substance: SEVELAMER CARBONATE
     Dosage: 12 DF, UNK
     Route: 048
     Dates: start: 20180822, end: 20180823
  69. BLINDED PLACEBO [Suspect]
     Active Substance: INVESTIGATIONAL PRODUCT
     Dosage: 12 DF, UNK
     Route: 048
     Dates: start: 20180825, end: 20180825
  70. BLINDED SEVELAMER CARBONATE [Suspect]
     Active Substance: SEVELAMER CARBONATE
     Dosage: 12 DF, UNK
     Route: 048
     Dates: start: 20180825, end: 20180825
  71. BLINDED NO STUDY DRUG GIVEN [Suspect]
     Active Substance: INVESTIGATIONAL PRODUCT
     Dosage: 8 DF, UNK
     Route: 048
     Dates: start: 20180826, end: 20180828
  72. BLINDED SEVELAMER CARBONATE [Suspect]
     Active Substance: SEVELAMER CARBONATE
     Dosage: 8 DF, UNK
     Route: 048
     Dates: start: 20180826, end: 20180828
  73. BLINDED PLACEBO [Suspect]
     Active Substance: INVESTIGATIONAL PRODUCT
     Dosage: 0 DF, UNK
     Route: 048
     Dates: start: 20180829, end: 20180902
  74. BLINDED PLACEBO [Suspect]
     Active Substance: INVESTIGATIONAL PRODUCT
     Indication: HYPERPHOSPHATAEMIA
     Dosage: 4 DF, QD
     Route: 048
     Dates: start: 20180705, end: 20180705
  75. BLINDED SEVELAMER CARBONATE [Suspect]
     Active Substance: SEVELAMER CARBONATE
     Indication: HYPERPHOSPHATAEMIA
     Dosage: 4 DF, QD
     Route: 048
     Dates: start: 20180705, end: 20180705
  76. BLINDED SEVELAMER CARBONATE [Suspect]
     Active Substance: SEVELAMER CARBONATE
     Dosage: 2 DF, QD
     Route: 048
     Dates: start: 20180718, end: 20180718
  77. BLINDED SEVELAMER CARBONATE [Suspect]
     Active Substance: SEVELAMER CARBONATE
     Dosage: 3 DF, QD
     Route: 048
     Dates: start: 20180720, end: 20180721
  78. BLINDED PLACEBO [Suspect]
     Active Substance: INVESTIGATIONAL PRODUCT
     Dosage: 4 DF, QD
     Route: 048
     Dates: start: 20180731, end: 20180731
  79. BLINDED SEVELAMER CARBONATE [Suspect]
     Active Substance: SEVELAMER CARBONATE
     Dosage: 4 DF, QD
     Route: 048
     Dates: start: 20180731, end: 20180731
  80. BLINDED SEVELAMER CARBONATE [Suspect]
     Active Substance: SEVELAMER CARBONATE
     Dosage: 6 DF, QD
     Route: 048
     Dates: start: 20180801, end: 20180801
  81. BLINDED SEVELAMER CARBONATE [Suspect]
     Active Substance: SEVELAMER CARBONATE
     Dosage: 6 DF, QD
     Route: 048
     Dates: start: 20180804, end: 20180806
  82. BLINDED SEVELAMER CARBONATE [Suspect]
     Active Substance: SEVELAMER CARBONATE
     Dosage: 9 DF, QD
     Route: 048
     Dates: start: 20180807, end: 20180808
  83. BLINDED SEVELAMER CARBONATE [Suspect]
     Active Substance: SEVELAMER CARBONATE
     Dosage: 9 DF, QD
     Route: 048
     Dates: start: 20180807, end: 20180808
  84. BLINDED SEVELAMER CARBONATE [Suspect]
     Active Substance: SEVELAMER CARBONATE
     Dosage: 6 DF, QD
     Route: 048
     Dates: start: 20180809, end: 20180809
  85. BLINDED SEVELAMER CARBONATE [Suspect]
     Active Substance: SEVELAMER CARBONATE
     Dosage: 12 DF, UNK
     Route: 048
     Dates: start: 20180825, end: 20180825
  86. BLINDED SEVELAMER CARBONATE [Suspect]
     Active Substance: SEVELAMER CARBONATE
     Dosage: 12 DF, UNK
     Route: 048
     Dates: start: 20180825, end: 20180825
  87. CALCIUM DOBESILATE [Concomitant]
     Active Substance: CALCIUM DOBESILATE
     Indication: CHRONIC KIDNEY DISEASE
     Dosage: 6 DF, TID
     Route: 048
     Dates: start: 20180209
  88. COATED ALDEHYDE OXYSTARCH [Concomitant]
     Indication: CHRONIC KIDNEY DISEASE
     Dosage: 1.55 G, TID (24 GRAINS)
     Route: 048
     Dates: start: 20180108
  89. BLINDED SEVELAMER CARBONATE [Suspect]
     Active Substance: SEVELAMER CARBONATE
     Dosage: 6 DF, QD
     Route: 048
     Dates: start: 20180706, end: 20180707
  90. BLINDED SEVELAMER CARBONATE [Suspect]
     Active Substance: SEVELAMER CARBONATE
     Dosage: 6 DF, QD
     Route: 048
     Dates: start: 20180706, end: 20180707
  91. BLINDED PLACEBO [Suspect]
     Active Substance: INVESTIGATIONAL PRODUCT
     Dosage: 1 DF, QD
     Route: 048
     Dates: start: 20180719, end: 20180719
  92. BLINDED SEVELAMER CARBONATE [Suspect]
     Active Substance: SEVELAMER CARBONATE
     Dosage: 6 DF, QD
     Route: 048
     Dates: start: 20180722, end: 20180730
  93. BLINDED NO STUDY DRUG GIVEN [Suspect]
     Active Substance: INVESTIGATIONAL PRODUCT
     Dosage: 4 DF, QD
     Route: 048
     Dates: start: 20180802, end: 20180802
  94. BLINDED SEVELAMER CARBONATE [Suspect]
     Active Substance: SEVELAMER CARBONATE
     Dosage: 9 DF, QD
     Route: 048
     Dates: start: 20180807, end: 20180808
  95. BLINDED PLACEBO [Suspect]
     Active Substance: INVESTIGATIONAL PRODUCT
     Dosage: 9 DF, QD
     Route: 048
     Dates: start: 20180810, end: 20180815
  96. BLINDED SEVELAMER CARBONATE [Suspect]
     Active Substance: SEVELAMER CARBONATE
     Dosage: 12 DF, UNK
     Route: 048
     Dates: start: 20180822, end: 20180823
  97. BLINDED SEVELAMER CARBONATE [Suspect]
     Active Substance: SEVELAMER CARBONATE
     Dosage: 8 DF, UNK
     Route: 041
     Dates: start: 20180824, end: 20180824
  98. CARVEDILOL. [Concomitant]
     Active Substance: CARVEDILOL
     Indication: HYPERTENSION
     Dosage: 1 DF, QD
     Route: 048
     Dates: start: 20171230
  99. BLINDED NO STUDY DRUG GIVEN [Suspect]
     Active Substance: INVESTIGATIONAL PRODUCT
     Dosage: 2 DF, QD
     Route: 048
     Dates: start: 20180718, end: 20180718
  100. BLINDED PLACEBO [Suspect]
     Active Substance: INVESTIGATIONAL PRODUCT
     Dosage: 2 DF, QD
     Route: 048
     Dates: start: 20180718, end: 20180718
  101. BLINDED SEVELAMER CARBONATE [Suspect]
     Active Substance: SEVELAMER CARBONATE
     Dosage: 1 DF, QD
     Route: 048
     Dates: start: 20180719, end: 20180719
  102. BLINDED SEVELAMER CARBONATE [Suspect]
     Active Substance: SEVELAMER CARBONATE
     Dosage: 3 DF, QD
     Route: 048
     Dates: start: 20180720, end: 20180721
  103. BLINDED SEVELAMER CARBONATE [Suspect]
     Active Substance: SEVELAMER CARBONATE
     Dosage: 6 DF, QD
     Route: 048
     Dates: start: 20180801, end: 20180801
  104. BLINDED SEVELAMER CARBONATE [Suspect]
     Active Substance: SEVELAMER CARBONATE
     Dosage: 6 DF, QD
     Route: 048
     Dates: start: 20180801, end: 20180801
  105. BLINDED SEVELAMER CARBONATE [Suspect]
     Active Substance: SEVELAMER CARBONATE
     Dosage: 6 DF, QD
     Route: 048
     Dates: start: 20180804, end: 20180806
  106. BLINDED PLACEBO [Suspect]
     Active Substance: INVESTIGATIONAL PRODUCT
     Dosage: 9 DF, QD
     Route: 048
     Dates: start: 20180807, end: 20180808
  107. BLINDED NO STUDY DRUG GIVEN [Suspect]
     Active Substance: INVESTIGATIONAL PRODUCT
     Dosage: 6 DF, QD
     Route: 048
     Dates: start: 20180809, end: 20180809
  108. BLINDED SEVELAMER CARBONATE [Suspect]
     Active Substance: SEVELAMER CARBONATE
     Dosage: 6 DF, QD
     Route: 048
     Dates: start: 20180809, end: 20180809
  109. BLINDED NO STUDY DRUG GIVEN [Suspect]
     Active Substance: INVESTIGATIONAL PRODUCT
     Dosage: 0 DF, UNK
     Route: 048
     Dates: start: 20180829, end: 20180902
  110. BLINDED SEVELAMER CARBONATE [Suspect]
     Active Substance: SEVELAMER CARBONATE
     Dosage: 0 DF, UNK
     Route: 048
     Dates: start: 20180829, end: 20180902
  111. AMLODIPINE BESYLATE. [Concomitant]
     Active Substance: AMLODIPINE BESYLATE
     Indication: HYPERTENSION
     Dosage: 1 DF, QD
     Route: 048
     Dates: start: 20171230, end: 20180628

REACTIONS (2)
  - End stage renal disease [Not Recovered/Not Resolved]
  - Tuberculosis [Not Recovered/Not Resolved]

NARRATIVE: CASE EVENT DATE: 20180831
